FAERS Safety Report 11741530 (Version 1)
Quarter: 2015Q4

REPORT INFORMATION
  Report Type: Report from Study
  Country: EC (occurrence: EC)
  Receive Date: 20151116
  Receipt Date: 20151116
  Transmission Date: 20160304
  Serious: Yes (Hospitalization)
  Sender: FDA-Public Use
  Company Number: PHHY2015EC142402

PATIENT
  Age: 62 Year
  Sex: Female

DRUGS (2)
  1. SANDOSTATIN LAR DEPOT [Suspect]
     Active Substance: OCTREOTIDE ACETATE
     Dosage: 20 MG, EVERY 37 DAYS
     Route: 065
     Dates: start: 20151023
  2. SANDOSTATIN LAR DEPOT [Suspect]
     Active Substance: OCTREOTIDE ACETATE
     Indication: ACROMEGALY
     Dosage: 20 MG, QMO
     Route: 030
     Dates: start: 20141201

REACTIONS (6)
  - Abdominal pain [Unknown]
  - Constipation [Unknown]
  - Neuralgia [Recovering/Resolving]
  - Acute abdomen [Unknown]
  - Inappropriate schedule of drug administration [Unknown]
  - Nausea [Unknown]

NARRATIVE: CASE EVENT DATE: 20151023
